FAERS Safety Report 4536773-7 (Version None)
Quarter: 2004Q4

REPORT INFORMATION
  Report Type: 
  Country: None (occurrence: None)
  Receive Date: 20041223
  Receipt Date: 20041012
  Transmission Date: 20050328
  Serious: Yes (Hospitalization, Disabling)
  Sender: FDA-Public Use
  Company Number: JP-ROCHE-383714

PATIENT
  Age: 67 Year
  Sex: Male

DRUGS (7)
  1. PEGASYS [Suspect]
     Indication: HEPATITIS C
     Route: 058
     Dates: start: 20040922, end: 20041015
  2. PEGASYS [Suspect]
     Route: 058
     Dates: start: 20041021, end: 20041021
  3. PEGASYS [Suspect]
     Dosage: DOSE DECREASED
     Route: 058
     Dates: start: 20041104, end: 20041124
  4. GASTROM [Concomitant]
     Indication: HEPATITIS C
     Route: 048
  5. ZANTAC [Concomitant]
     Route: 048
  6. ADALAT CC [Concomitant]
     Route: 048
  7. DIOVAN [Concomitant]
     Route: 048

REACTIONS (7)
  - ATAXIA [None]
  - BLOOD PRESSURE INCREASED [None]
  - CEREBRAL HAEMORRHAGE [None]
  - CONVULSION [None]
  - FALL [None]
  - HEMIPLEGIA [None]
  - PLATELET COUNT DECREASED [None]
